FAERS Safety Report 6317319-X (Version None)
Quarter: 2009Q3

REPORT INFORMATION
  Report Type: 
  Country: None (occurrence: None)
  Receive Date: 20090821
  Receipt Date: 20090812
  Transmission Date: 20100115
  Serious: Yes (Hospitalization)
  Sender: FDA-Public Use
  Company Number: US-BIOGENIDEC-2008BI006752

PATIENT
  Age: 48 Year
  Sex: Female

DRUGS (2)
  1. AVONEX [Suspect]
     Indication: MULTIPLE SCLEROSIS
     Route: 030
     Dates: start: 20030801, end: 20080715
  2. AVONEX [Suspect]
     Route: 030
     Dates: start: 19960901, end: 20030701

REACTIONS (5)
  - CELLULITIS [None]
  - DEHYDRATION [None]
  - DIZZINESS [None]
  - FALL [None]
  - JOINT INJURY [None]
